FAERS Safety Report 5979406-5 (Version None)
Quarter: 2008Q4

REPORT INFORMATION
  Report Type: 
  Country: None (occurrence: None)
  Receive Date: 20081204
  Receipt Date: 20081127
  Transmission Date: 20090506
  Serious: Yes (Hospitalization, Other)
  Sender: FDA-Public Use
  Company Number: FR-ABBOTT-08P-056-0490032-00

PATIENT
  Sex: Female

DRUGS (10)
  1. SEVORANE [Suspect]
     Indication: ANAESTHESIA
     Route: 055
     Dates: start: 20080924, end: 20080924
  2. SEVORANE [Suspect]
     Indication: SCOLIOSIS SURGERY
  3. ATRACURIUM BESYLATE [Suspect]
     Indication: ANAESTHESIA
     Dates: start: 20080924, end: 20080924
  4. ATRACURIUM BESYLATE [Suspect]
     Indication: SCOLIOSIS SURGERY
  5. MIDAZOLAM HYDROCHLORIDE [Suspect]
     Indication: ANAESTHESIA
     Dates: start: 20080924, end: 20080924
  6. MIDAZOLAM HYDROCHLORIDE [Suspect]
     Indication: SCOLIOSIS SURGERY
  7. SUFENTANIL CITRATE [Suspect]
     Indication: ANAESTHESIA
     Dates: start: 20080924, end: 20080924
  8. SUFENTANIL CITRATE [Suspect]
     Indication: SCOLIOSIS SURGERY
  9. DROPERIDOL [Suspect]
     Indication: ANAESTHESIA
     Route: 040
     Dates: start: 20080924, end: 20080924
  10. DROPERIDOL [Suspect]
     Indication: SCOLIOSIS SURGERY

REACTIONS (4)
  - CYTOLYTIC HEPATITIS [None]
  - HYPERTENSION [None]
  - HYPOTENSION [None]
  - OVERDOSE [None]
